FAERS Safety Report 5943225-6 (Version None)
Quarter: 2008Q4

REPORT INFORMATION
  Report Type: 
  Country: None (occurrence: None)
  Receive Date: 20081106
  Receipt Date: 20081031
  Transmission Date: 20090506
  Serious: Yes (Other)
  Sender: FDA-Public Use
  Company Number: B0545002A

PATIENT
  Age: 32 Year
  Sex: Male

DRUGS (5)
  1. KIVEXA [Suspect]
     Indication: HIV INFECTION
     Route: 065
     Dates: start: 20060316, end: 20070130
  2. KALETRA [Suspect]
     Indication: HIV INFECTION
     Route: 048
     Dates: start: 20060316
  3. SUSTIVA [Suspect]
     Indication: HIV INFECTION
     Route: 065
     Dates: start: 20071009
  4. NORVIR [Concomitant]
     Indication: HIV INFECTION
     Route: 048
  5. REYATAZ [Concomitant]
     Indication: HIV INFECTION
     Route: 048

REACTIONS (4)
  - DYSLIPIDAEMIA [None]
  - MENTAL DISORDER [None]
  - MITOCHONDRIAL CYTOPATHY [None]
  - MYOSITIS [None]
